FAERS Safety Report 16807635 (Version 4)
Quarter: 2020Q1

REPORT INFORMATION
  Report Type: Spontaneous
  Country: US (occurrence: US)
  Receive Date: 20190914
  Receipt Date: 20200318
  Transmission Date: 20200409
  Serious: No
  Sender: FDA-Public Use
  Company Number: PHEH2019US038084

PATIENT
  Sex: Female

DRUGS (4)
  1. VOTRIENT [Suspect]
     Active Substance: PAZOPANIB HYDROCHLORIDE
     Indication: NEOPLASM
     Dosage: 800 MG, QD
     Route: 048
     Dates: start: 20190822
  2. VOTRIENT [Suspect]
     Active Substance: PAZOPANIB HYDROCHLORIDE
     Indication: CARTILAGE NEOPLASM
  3. VOTRIENT [Suspect]
     Active Substance: PAZOPANIB HYDROCHLORIDE
     Indication: NEOPLASM
  4. VOTRIENT [Suspect]
     Active Substance: PAZOPANIB HYDROCHLORIDE
     Indication: BONE NEOPLASM

REACTIONS (6)
  - Menorrhagia [Unknown]
  - Skin discolouration [Unknown]
  - Cough [Unknown]
  - Hair colour changes [Unknown]
  - Skin depigmentation [Unknown]
  - Diarrhoea [Unknown]
